FAERS Safety Report 20483079 (Version 1)
Quarter: 2022Q1

REPORT INFORMATION
  Report Type: Other
  Country: US (occurrence: None)
  Receive Date: 20220217
  Receipt Date: 20220217
  Transmission Date: 20220424
  Serious: Yes (Other)
  Sender: FDA-Public Use
  Company Number: US-ROCHE-1976757

PATIENT
  Age: 57 Year
  Sex: Female
  Weight: 56.750 kg

DRUGS (15)
  1. RITUXAN [Suspect]
     Active Substance: RITUXIMAB
     Indication: Cryoglobulinaemia
     Dosage: ONGOING: YES ONCE A WEEK FOR 4 WEEKS
     Route: 042
     Dates: start: 20170731
  2. RITUXAN [Suspect]
     Active Substance: RITUXIMAB
     Indication: Sjogren^s syndrome
     Dosage: DATE OF SERVICE: 21/AUG/2017, 14/AUG/2017, 28/AUG/2017
     Route: 042
  3. RITUXAN [Suspect]
     Active Substance: RITUXIMAB
     Indication: Arteritis
     Dosage: NEXT DATE OF INFUSION: 19/SEP/2018 AND 03/OCT/2018. 1000 MG ON DAY 1 AND DAY 15 EVERY 6 MONTHS.
     Route: 042
     Dates: start: 20180314
  4. RITUXAN [Suspect]
     Active Substance: RITUXIMAB
     Indication: Arterial disorder
  5. LEVOTHYROXINE SODIUM [Concomitant]
     Active Substance: LEVOTHYROXINE SODIUM
     Route: 048
  6. LIOTHYRONINE [Concomitant]
     Active Substance: LIOTHYRONINE
     Dosage: EMPTY STOMACH
     Route: 048
  7. MOTRIN IB [Concomitant]
     Active Substance: IBUPROFEN
     Route: 048
  8. ZOLPIDEM TARTRATE [Concomitant]
     Active Substance: ZOLPIDEM TARTRATE
     Route: 048
  9. AZATHIOPRINE [Concomitant]
     Active Substance: AZATHIOPRINE
     Dosage: TAKE 2.5 TABBLET AT BEDTIME
     Route: 048
  10. ELIDEL [Concomitant]
     Active Substance: PIMECROLIMUS
     Route: 061
  11. PLAQUENIL [Concomitant]
     Active Substance: HYDROXYCHLOROQUINE SULFATE
     Route: 048
  12. METHYLPREDNISOLONE [Concomitant]
     Active Substance: METHYLPREDNISOLONE
     Route: 048
  13. DEXAMETHASONE [Concomitant]
     Active Substance: DEXAMETHASONE
     Route: 042
  14. DIPHENHYDRAMINE HYDROCHLORIDE [Concomitant]
     Active Substance: DIPHENHYDRAMINE HYDROCHLORIDE
     Route: 042
  15. NITROFURANTOIN [Concomitant]
     Active Substance: NITROFURANTOIN
     Indication: Urinary tract infection
     Route: 048
     Dates: start: 201708, end: 20170808

REACTIONS (2)
  - Urinary tract infection [Recovered/Resolved]
  - Off label use [Unknown]

NARRATIVE: CASE EVENT DATE: 20170802
